FAERS Safety Report 7880203-4 (Version None)
Quarter: 2011Q4

REPORT INFORMATION
  Report Type: 
  Country: None (occurrence: None)
  Receive Date: 20111101
  Receipt Date: 20111027
  Transmission Date: 20120403
  Serious: Yes (Other)
  Sender: FDA-Public Use
  Company Number: US-PFIZER INC-2011264364

PATIENT
  Sex: Male
  Weight: 83.9 kg

DRUGS (3)
  1. NAPROXEN [Concomitant]
     Indication: OSTEOARTHRITIS
     Dosage: 50 MG, DAILY
  2. VIAGRA [Suspect]
     Indication: PENIS DISORDER
     Dosage: 200 MG, UNK
     Route: 048
     Dates: start: 20111027
  3. IBUPROFEN [Concomitant]
     Indication: OSTEOARTHRITIS
     Dosage: 600 MG, DAILY

REACTIONS (2)
  - INCORRECT DOSE ADMINISTERED [None]
  - ERECTION INCREASED [None]
